FAERS Safety Report 5711323-8 (Version None)
Quarter: 2008Q2

REPORT INFORMATION
  Report Type: 
  Country: None (occurrence: None)
  Receive Date: 20080421
  Receipt Date: 20080411
  Transmission Date: 20081010
  Serious: Yes (Life-Threatening, Hospitalization, Other)
  Sender: FDA-Public Use
  Company Number: A0685673A

PATIENT
  Age: 43 Year
  Sex: Female
  Weight: 113.2 kg

DRUGS (7)
  1. LAMICTAL [Suspect]
     Indication: COMPLEX PARTIAL SEIZURES
     Dosage: 300MG TWICE PER DAY
     Route: 048
     Dates: start: 20060101
  2. SEASONALE [Suspect]
     Route: 048
     Dates: start: 20070101
  3. BIRTH CONTROL PILL [Suspect]
     Indication: HORMONE THERAPY
  4. KEPPRA [Suspect]
     Indication: COMPLEX PARTIAL SEIZURES
  5. DILANTIN [Suspect]
  6. ZONEGRAN [Suspect]
     Dosage: 200MG PER DAY
  7. FUROSEMIDE [Concomitant]

REACTIONS (8)
  - ANTICONVULSANT DRUG LEVEL DECREASED [None]
  - CONVULSION [None]
  - DIZZINESS [None]
  - DRUG INTERACTION [None]
  - GRAND MAL CONVULSION [None]
  - HEADACHE [None]
  - MOUTH INJURY [None]
  - STATUS EPILEPTICUS [None]
